FAERS Safety Report 7354300-6 (Version None)
Quarter: 2011Q1

REPORT INFORMATION
  Report Type: 
  Country: None (occurrence: None)
  Receive Date: 20110316
  Receipt Date: 20110303
  Transmission Date: 20110831
  Serious: No
  Sender: FDA-Public Use
  Company Number: US-BIOGENIDEC-2011BI008512

PATIENT
  Age: 47 Year
  Sex: Female

DRUGS (2)
  1. AVONEX [Suspect]
     Indication: MULTIPLE SCLEROSIS
     Route: 030
     Dates: start: 20101216
  2. TEGRETOL [Concomitant]
     Indication: NEURALGIA
     Dates: start: 19980101

REACTIONS (2)
  - NEURALGIA [None]
  - INFLUENZA LIKE ILLNESS [None]
